FAERS Safety Report 17096945 (Version 1)
Quarter: 2019Q4

REPORT INFORMATION
  Report Type: Spontaneous
  Country: US (occurrence: US)
  Receive Date: 20191102
  Receipt Date: 20191102
  Transmission Date: 20200122
  Serious: Yes (Hospitalization)
  Sender: FDA-Public Use
  Company Number: None

PATIENT
  Age: 56 Year
  Sex: Female
  Weight: 57.8 kg

DRUGS (1)
  1. CISPLATIN. [Suspect]
     Active Substance: CISPLATIN
     Dates: end: 20191016

REACTIONS (13)
  - Bedridden [None]
  - Oropharyngeal pain [None]
  - Balance disorder [None]
  - Hypophagia [None]
  - Nausea [None]
  - Deafness unilateral [None]
  - Dysphagia [None]
  - Coordination abnormal [None]
  - Food aversion [None]
  - Vomiting [None]
  - Fatigue [None]
  - Dysgeusia [None]
  - Weight decreased [None]

NARRATIVE: CASE EVENT DATE: 20191023
